FAERS Safety Report 13270810 (Version 1)
Quarter: 2017Q1

REPORT INFORMATION
  Report Type: Spontaneous
  Country: US (occurrence: US)
  Receive Date: 20170225
  Receipt Date: 20170225
  Transmission Date: 20170428
  Serious: No
  Sender: FDA-Public Use
  Company Number: US-B.I. PHARMACEUTICALS,INC./RIDGEFIELD-2017-BI-009691

PATIENT
  Sex: Female

DRUGS (1)
  1. GILOTRIF [Suspect]
     Active Substance: AFATINIB
     Indication: LUNG NEOPLASM MALIGNANT
     Dosage: 1 TABLET ONCE A DAY;  FORM STRENGTH: 20 MG; FORMULATION: TABLET? ADMINISTRATION CORRECT? YES ?ACTION
     Route: 048
     Dates: start: 201701

REACTIONS (1)
  - Memory impairment [Not Recovered/Not Resolved]
